FAERS Safety Report 24686581 (Version 1)
Quarter: 2024Q4

REPORT INFORMATION
  Report Type: Spontaneous
  Country: US (occurrence: None)
  Receive Date: 20241129
  Receipt Date: 20241129
  Transmission Date: 20250114
  Serious: Yes (Life-Threatening, Other)
  Sender: Public
  Company Number: None

PATIENT
  Age: 22 Year
  Sex: Female
  Weight: 48.6 kg

DRUGS (1)
  1. GABAPENTIN [Suspect]
     Active Substance: GABAPENTIN
     Indication: Anxiety
     Dates: start: 20210101, end: 20241020

REACTIONS (7)
  - Therapy interrupted [None]
  - Depression [None]
  - Suicidal ideation [None]
  - Withdrawal syndrome [None]
  - Depressed mood [None]
  - Flat affect [None]
  - Drug dependence [None]
